FAERS Safety Report 26038120 (Version 1)
Quarter: 2025Q4

REPORT INFORMATION
  Report Type: Spontaneous
  Country: US (occurrence: US)
  Receive Date: 20251113
  Receipt Date: 20251113
  Transmission Date: 20260118
  Serious: No
  Sender: ROCHE
  Company Number: US-ROCHE-10000424884

PATIENT
  Sex: Female

DRUGS (3)
  1. ACTEMRA [Suspect]
     Active Substance: TOCILIZUMAB
     Indication: Juvenile idiopathic arthritis
     Dosage: STRENGTH: 162MG/0.9M
     Route: 058
     Dates: start: 20251023
  2. ACTEMRA [Suspect]
     Active Substance: TOCILIZUMAB
  3. ENBREL SDV (0.5ml/vl) [Concomitant]

REACTIONS (1)
  - Rash [Recovered/Resolved]
